FAERS Safety Report 8111568-6 (Version None)
Quarter: 2012Q1

REPORT INFORMATION
  Report Type: 
  Country: None (occurrence: None)
  Receive Date: 20120202
  Receipt Date: 20120202
  Transmission Date: 20120608
  Serious: Yes (Hospitalization)
  Sender: FDA-Public Use
  Company Number: None

PATIENT
  Age: 51 Year
  Sex: Male

DRUGS (1)
  1. OXALIPLATIN [Suspect]
     Dosage: 042

REACTIONS (3)
  - DYSPNOEA [None]
  - CHILLS [None]
  - CHEST DISCOMFORT [None]
